FAERS Safety Report 25098760 (Version 1)
Quarter: 2025Q1

REPORT INFORMATION
  Report Type: Spontaneous
  Country: JP (occurrence: JP)
  Receive Date: 20250320
  Receipt Date: 20250320
  Transmission Date: 20250409
  Serious: No
  Sender: ALKEM
  Company Number: JP-ALKEM LABORATORIES LIMITED-JP-ALKEM-2024-19568

PATIENT
  Age: 46 Year
  Sex: Male
  Weight: 51 kg

DRUGS (8)
  1. TIZANIDINE [Suspect]
     Active Substance: TIZANIDINE
     Indication: Tremor
     Route: 065
  2. TIZANIDINE [Suspect]
     Active Substance: TIZANIDINE
     Route: 065
  3. BUDESONIDE [Concomitant]
     Active Substance: BUDESONIDE
     Indication: Respiratory distress
     Dosage: 160 MICROGRAM, BID WITH TWO INHALATIONS
  4. BROMHEXINE [Concomitant]
     Active Substance: BROMHEXINE
     Indication: Respiratory distress
     Dosage: 4 MILLIGRAM, TID
  5. CEFOZOPRAN [Concomitant]
     Active Substance: CEFOZOPRAN
     Indication: Infection
     Route: 065
  6. FORMOTEROL [Concomitant]
     Active Substance: FORMOTEROL
     Indication: Respiratory distress
     Dosage: 4.8 MICROGRAM, BID WITH TWO INHALATIONS
  7. GLYCOPYRRONIUM [Concomitant]
     Active Substance: GLYCOPYRRONIUM
     Indication: Respiratory distress
     Dosage: 7.2 MICROGRAM, BID WITH TWO INHALATIONS
  8. ALBUTEROL [Concomitant]
     Active Substance: ALBUTEROL
     Indication: Respiratory distress
     Dosage: 2.5 MILLIGRAM, TID

REACTIONS (1)
  - Off label use [Unknown]
